FAERS Safety Report 5833738-X (Version None)
Quarter: 2008Q3

REPORT INFORMATION
  Report Type: 
  Country: None (occurrence: None)
  Receive Date: 20080801
  Receipt Date: 20080721
  Transmission Date: 20090109
  Serious: Yes (Hospitalization)
  Sender: FDA-Public Use
  Company Number: DSU-2008-01097

PATIENT
  Age: 53 Year
  Sex: Male
  Weight: 86.1834 kg

DRUGS (6)
  1. BENICAR [Suspect]
     Indication: HYPERTENSION
     Dosage: 20 MG (20 MG, QD), PER ORAL
     Route: 048
  2. ASPIRIN (ACETYLSALICYLIC ACID) (TABLET) (ACETYLSALICYLIC ACID) [Concomitant]
  3. LEVOTHYROXINE (LEVOTHYROXINE) (75 MICROGRAM, TABLET) (LEVOTHYROXINE) [Concomitant]
  4. NORVASC (AMLODIPINE BESILATE) (10 MILLIGRAM, TABLET) (AMLODIPINE BESIL [Concomitant]
  5. PRAVASTATIN (PRAVASTATIN) (40 MILLIGRAM, TABLET) (PRAVASTATIN) [Concomitant]
  6. TOPROL XL (METOPROLOL SUCCINATE) (50 MILLIGRAM, TABLET) (METOPROLOL SU [Concomitant]

REACTIONS (1)
  - MYOCARDIAL INFARCTION [None]
